FAERS Safety Report 14074044 (Version 1)
Quarter: 2017Q4

REPORT INFORMATION
  Report Type: Spontaneous
  Country: US (occurrence: US)
  Receive Date: 20171010
  Receipt Date: 20171010
  Transmission Date: 20180321
  Serious: No
  Sender: FDA-Public Use
  Company Number: US-JNJFOC-20170925598

PATIENT
  Age: 71 Year
  Sex: Female

DRUGS (1)
  1. TYLENOL REGULAR STRENGTH [Suspect]
     Active Substance: ACETAMINOPHEN
     Indication: THROAT IRRITATION
     Dosage: 1 OR 2 TABLETS AT FIRST SHE CAN NOT REMEMBER IF SHE TOOK ANOTHER TABLET OR TOOK 2 MORE TABLETS
     Route: 048
     Dates: start: 20170921

REACTIONS (1)
  - Product use in unapproved indication [Unknown]
